FAERS Safety Report 9849070 (Version 1)
Quarter: 2014Q1

REPORT INFORMATION
  Report Type: Spontaneous
  Country: US (occurrence: None)
  Receive Date: 20140124
  Receipt Date: 20140124
  Transmission Date: 20141002
  Serious: Yes (Death)
  Sender: FDA-Public Use
  Company Number: None

PATIENT
  Age: 70 Year
  Sex: Male
  Weight: 72.5 kg

DRUGS (2)
  1. EVEROLIMUS [Suspect]
  2. REVLIMID [Suspect]

REACTIONS (1)
  - Death [None]
